FAERS Safety Report 5291765-8 (Version None)
Quarter: 2007Q2

REPORT INFORMATION
  Report Type: 
  Country: None (occurrence: None)
  Receive Date: 20070410
  Receipt Date: 20070329
  Transmission Date: 20071010
  Serious: Yes (Hospitalization)
  Sender: FDA-Public Use
  Company Number: PHEH2007US02816

PATIENT

DRUGS (7)
  1. LOTREL [Suspect]
     Indication: HYPERTENSION
     Dosage: 5/20, BID
     Route: 048
  2. LOTREL [Suspect]
     Dosage: 10/40, QD
     Route: 048
  3. DURAGESIC-100 [Concomitant]
     Dosage: 50 MCG, Q72 HOURS
     Route: 062
  4. PROTONIX [Concomitant]
     Dosage: 40 MG, QD
     Route: 048
  5. CRESTOR [Concomitant]
     Dosage: 10 MG, QD
     Route: 048
  6. ASPIRIN [Concomitant]
     Dosage: 325 MG, QD
     Route: 048
  7. NORVASC [Concomitant]
     Indication: HYPERTENSION

REACTIONS (4)
  - DYSPNOEA [None]
  - HYPERKALAEMIA [None]
  - OEDEMA [None]
  - RENAL FAILURE [None]
